FAERS Safety Report 7763730-X (Version None)
Quarter: 2011Q3

REPORT INFORMATION
  Report Type: 
  Country: None (occurrence: None)
  Receive Date: 20110921
  Receipt Date: 20091008
  Transmission Date: 20111222
  Serious: Yes (Hospitalization)
  Sender: FDA-Public Use
  Company Number: DE-RANBAXY-2009US-45774

PATIENT
  Age: 94 Year
  Sex: Female
  Weight: 60 kg

DRUGS (11)
  1. BAYPEN [Suspect]
     Indication: PRODUCT USED FOR UNKNOWN INDICATION
     Dosage: 2.000000 G, QD
     Route: 042
     Dates: start: 20090713, end: 20090724
  2. OLMESARTAN MEDOXOMIL [Concomitant]
     Indication: PRODUCT USED FOR UNKNOWN INDICATION
     Dosage: 30 MG, UNK
     Route: 048
     Dates: start: 20030101, end: 20090702
  3. NOVALGIN [Concomitant]
     Indication: PRODUCT USED FOR UNKNOWN INDICATION
     Dosage: 500 MG, TID
     Route: 048
     Dates: start: 20090704, end: 20090709
  4. NOVALGIN [Concomitant]
     Dosage: 750 MG, TID
     Route: 048
     Dates: start: 20090716, end: 20090716
  5. ACETAMINOPHEN [Suspect]
     Indication: PRODUCT USED FOR UNKNOWN INDICATION
     Dosage: 500 MG, TID
     Route: 048
     Dates: start: 20090703, end: 20090713
  6. CITALOPRAM HYDROBROMIDE [Suspect]
     Indication: PRODUCT USED FOR UNKNOWN INDICATION
     Dosage: 10.000000 MG, QD
     Route: 048
     Dates: start: 20090714, end: 20090722
  7. OLMESARTAN MEDOXOMIL [Concomitant]
     Dosage: 10 MG, UNK
     Route: 048
     Dates: start: 20090703, end: 20090722
  8. PANTOPRAZOLE [Suspect]
     Indication: PRODUCT USED FOR UNKNOWN INDICATION
     Dosage: 20 MG, QD
     Route: 048
     Dates: start: 20090703, end: 20090713
  9. ARCOXIA [Suspect]
     Indication: PRODUCT USED FOR UNKNOWN INDICATION
     Dosage: 90.000000 MG, QD
     Route: 048
     Dates: start: 20090706, end: 20090713
  10. ENOXAPARIN SODIUM [Concomitant]
     Indication: PRODUCT USED FOR UNKNOWN INDICATION
     Dosage: 4000 IU, QD
     Route: 058
     Dates: start: 20090704, end: 20090710
  11. NITROGLYCERIN [Concomitant]
     Indication: PRODUCT USED FOR UNKNOWN INDICATION
     Dosage: 400.000000 UG, QD
     Route: 055
     Dates: start: 20090707, end: 20090707

REACTIONS (1)
  - HEPATITIS ACUTE [None]
